FAERS Safety Report 18684803 (Version 3)
Quarter: 2021Q1

REPORT INFORMATION
  Report Type: Spontaneous
  Country: LB (occurrence: LB)
  Receive Date: 20201230
  Receipt Date: 20210225
  Transmission Date: 20210419
  Serious: Yes (Death, Other)
  Sender: FDA-Public Use
  Company Number: LB-NOVOPROD-777622

PATIENT
  Sex: Male

DRUGS (4)
  1. NOVOSEVEN [Suspect]
     Active Substance: COAGULATION FACTOR VIIA RECOMBINANT HUMAN
     Indication: ACQUIRED HAEMOPHILIA
     Dosage: UNK ( ONCE IN EVERY 2 HOUR)
     Route: 065
  2. NOVOSEVEN [Suspect]
     Active Substance: COAGULATION FACTOR VIIA RECOMBINANT HUMAN
     Indication: HAEMORRHAGE
     Dosage: UNK ( ONCE IN EVERY 4 HOUR)
     Route: 065
  3. NOVOSEVEN [Suspect]
     Active Substance: COAGULATION FACTOR VIIA RECOMBINANT HUMAN
     Dosage: UNK (ONCE EVERY 12 HOURS)
     Route: 065
  4. NOVOSEVEN [Suspect]
     Active Substance: COAGULATION FACTOR VIIA RECOMBINANT HUMAN
     Dosage: UNK (ONCE EVERY 6 HOUR)
     Route: 065

REACTIONS (3)
  - Embolism [Unknown]
  - COVID-19 [Fatal]
  - Respiratory failure [Fatal]
